FAERS Safety Report 21897333 (Version 1)
Quarter: 2023Q1

REPORT INFORMATION
  Report Type: Spontaneous
  Country: US (occurrence: None)
  Receive Date: 20230120
  Receipt Date: 20230120
  Transmission Date: 20230417
  Serious: Yes (Hospitalization)
  Sender: FDA-Public Use
  Company Number: None

PATIENT
  Age: 74 Year
  Sex: Male
  Weight: 96.6 kg

DRUGS (12)
  1. BEVACIZUMAB [Suspect]
     Active Substance: BEVACIZUMAB
     Indication: Glioblastoma multiforme
     Dosage: 10MG/KG EVERY 14 INFUSION?
     Dates: start: 20190821, end: 20200610
  2. NIVOLUMAB [Suspect]
     Active Substance: NIVOLUMAB
     Indication: Glioblastoma multiforme
     Dosage: 480MG EVERY 28 DAYS  INFUSION?
     Dates: start: 20190821, end: 20190610
  3. EYEHEALTH MULTIVITAMIN WITH MINERALS [Concomitant]
  4. NAPROXEN [Concomitant]
     Active Substance: NAPROXEN
  5. IBUPROFEN [Concomitant]
     Active Substance: IBUPROFEN
  6. ASPIRIN [Concomitant]
     Active Substance: ASPIRIN
  7. LISINOPRIL [Concomitant]
     Active Substance: LISINOPRIL
  8. IPILIMUMAB [Suspect]
     Active Substance: IPILIMUMAB
  9. BIOMONIDINA OPHTHALMIC [Concomitant]
  10. TIMOLOL [Concomitant]
     Active Substance: TIMOLOL
  11. AMLODIPINE [Concomitant]
     Active Substance: AMLODIPINE BESYLATE
  12. ATORVASTATIN [Concomitant]
     Active Substance: ATORVASTATIN

REACTIONS (9)
  - Hallucination [None]
  - Dysarthria [None]
  - Hemiparesis [None]
  - Aphasia [None]
  - Hallucination, visual [None]
  - Aphasia [None]
  - Encephalopathy [None]
  - Spinal osteoarthritis [None]
  - Hyperglycaemia [None]

NARRATIVE: CASE EVENT DATE: 20200624
